FAERS Safety Report 9161138 (Version 1)
Quarter: 2013Q1

REPORT INFORMATION
  Report Type: Spontaneous
  Country: JP (occurrence: JP)
  Receive Date: 20130313
  Receipt Date: 20130313
  Transmission Date: 20140127
  Serious: Yes (Life-Threatening, Hospitalization, Disabling)
  Sender: FDA-Public Use
  Company Number: JP-009507513-1011USA02003

PATIENT
  Age: 62 Year
  Sex: Female

DRUGS (5)
  1. JANUVIA [Suspect]
     Indication: HYPERGLYCAEMIA
     Dosage: 25 MG, QD
     Route: 048
     Dates: start: 20100910, end: 20101105
  2. ACTOS [Concomitant]
     Indication: HYPERGLYCAEMIA
     Dosage: 15 MG, QD
     Route: 048
     Dates: start: 20040117
  3. EUGLUCON [Concomitant]
     Indication: HYPERGLYCAEMIA
     Dosage: 1.25 MG, BID
     Route: 048
     Dates: start: 20041113
  4. MEVALOTIN [Concomitant]
     Indication: HYPERGLYCAEMIA
     Dosage: 10 MG, QD
     Route: 048
     Dates: start: 20060930
  5. MEDET [Concomitant]
     Indication: HYPERGLYCAEMIA
     Dosage: 250 MG, QD
     Route: 048
     Dates: start: 20080216

REACTIONS (1)
  - Aplastic anaemia [Not Recovered/Not Resolved]
